FAERS Safety Report 5718834-X (Version None)
Quarter: 2008Q2

REPORT INFORMATION
  Report Type: 
  Country: None (occurrence: None)
  Receive Date: 20080425
  Receipt Date: 20080401
  Transmission Date: 20081010
  Serious: No
  Sender: FDA-Public Use
  Company Number: US-BOEHRINGER INGELHEIM GMBH, GERMANY-2008-BP-00433BP

PATIENT
  Sex: Female

DRUGS (8)
  1. SPIRIVA [Suspect]
     Indication: CHRONIC OBSTRUCTIVE PULMONARY DISEASE
     Route: 055
     Dates: start: 20070701
  2. SYNTHROID [Concomitant]
     Indication: HYPOTHYROIDISM
  3. AVALIDE [Concomitant]
     Indication: HYPERTENSION
  4. WELLBUTRIN [Concomitant]
     Indication: MULTIPLE SCLEROSIS
  5. AMPHETA [Concomitant]
     Indication: FATIGUE
  6. ULTRAM [Concomitant]
     Indication: PAIN
  7. BENEDYL [Concomitant]
     Indication: SLEEP DISORDER
  8. CAPAXONE [Concomitant]
     Indication: MULTIPLE SCLEROSIS

REACTIONS (4)
  - COUGH [None]
  - RESPIRATORY THERAPY [None]
  - STRESS URINARY INCONTINENCE [None]
  - WHEEZING [None]
